FAERS Safety Report 21741028 (Version 13)
Quarter: 2023Q4

REPORT INFORMATION
  Report Type: Report from Study
  Country: CO (occurrence: CO)
  Receive Date: 20221216
  Receipt Date: 20231106
  Transmission Date: 20240109
  Serious: Yes (Other)
  Sender: FDA-Public Use
  Company Number: CO-TAKEDA-CO202028273

PATIENT
  Age: 33 Year
  Sex: Male
  Weight: 88 kg

DRUGS (6)
  1. ICATIBANT [Suspect]
     Active Substance: ICATIBANT ACETATE
     Indication: Hereditary angioedema
     Dosage: UNK
     Route: 058
     Dates: start: 20180629
  2. ICATIBANT [Suspect]
     Active Substance: ICATIBANT ACETATE
     Indication: Hereditary angioedema
     Dosage: UNK
     Route: 058
     Dates: start: 20180629
  3. ICATIBANT [Suspect]
     Active Substance: ICATIBANT ACETATE
     Indication: Angioedema
     Dosage: 1 DOSAGE FORM, Q6HR
     Route: 058
  4. ICATIBANT [Suspect]
     Active Substance: ICATIBANT ACETATE
     Indication: Angioedema
     Dosage: 1 DOSAGE FORM, Q6HR
     Route: 058
  5. DANAZOL [Concomitant]
     Active Substance: DANAZOL
     Dosage: 200 MILLIGRAM, QD
     Route: 065
  6. DANAZOL [Concomitant]
     Active Substance: DANAZOL
     Dosage: 1 DOSAGE FORM, QD
     Route: 065

REACTIONS (20)
  - Haematochezia [Not Recovered/Not Resolved]
  - Rectal haemorrhage [Recovered/Resolved]
  - Exposure via body fluid [Unknown]
  - Weight decreased [Unknown]
  - Malaise [Unknown]
  - Muscle spasms [Unknown]
  - Obesity [Unknown]
  - Weight increased [Unknown]
  - Discouragement [Not Recovered/Not Resolved]
  - Depressed mood [Not Recovered/Not Resolved]
  - Emotional distress [Not Recovered/Not Resolved]
  - Insomnia [Not Recovered/Not Resolved]
  - Disturbance in attention [Not Recovered/Not Resolved]
  - Pain [Not Recovered/Not Resolved]
  - Illness [Not Recovered/Not Resolved]
  - Crying [Not Recovered/Not Resolved]
  - Nasal congestion [Unknown]
  - Headache [Unknown]
  - Product use issue [Unknown]
  - Product prescribing error [Unknown]

NARRATIVE: CASE EVENT DATE: 20200827
